FAERS Safety Report 23749234 (Version 1)
Quarter: 2024Q2

REPORT INFORMATION
  Report Type: Spontaneous
  Country: US (occurrence: None)
  Receive Date: 20240416
  Receipt Date: 20240416
  Transmission Date: 20240716
  Serious: Yes (Disabling)
  Sender: FDA-Public Use
  Company Number: None

PATIENT
  Age: 59 Year
  Sex: Male
  Weight: 75.96 kg

DRUGS (8)
  1. RUXIENCE [Suspect]
     Active Substance: RITUXIMAB-PVVR
     Indication: Rheumatoid arthritis
     Dosage: 2 VIALS DAY 1 AND DAY 15 INTRVAENOUS
     Route: 042
     Dates: start: 20230417, end: 20231121
  2. RUXIENCE [Suspect]
     Active Substance: RITUXIMAB-PVVR
     Indication: Rheumatoid lung
  3. CELLCEPT [Concomitant]
     Active Substance: MYCOPHENOLATE MOFETIL
  4. DICLOFENAC [Concomitant]
     Active Substance: DICLOFENAC
  5. FOLIC ACID [Concomitant]
     Active Substance: FOLIC ACID
  6. METHOTREXATE [Concomitant]
     Active Substance: METHOTREXATE
  7. PREDNISONE [Concomitant]
     Active Substance: PREDNISONE
  8. PROLIA [Concomitant]
     Active Substance: DENOSUMAB

REACTIONS (2)
  - Pulmonary fibrosis [None]
  - Condition aggravated [None]

NARRATIVE: CASE EVENT DATE: 20230417
